FAERS Safety Report 10994895 (Version 3)
Quarter: 2016Q2

REPORT INFORMATION
  Report Type: Report from Study
  Country: US (occurrence: US)
  Receive Date: 20150407
  Receipt Date: 20160412
  Transmission Date: 20160815
  Serious: Yes (Hospitalization)
  Sender: FDA-Public Use
  Company Number: PHHO2014US016280

PATIENT
  Age: 51 Year
  Sex: Male
  Weight: 72.8 kg

DRUGS (3)
  1. CERTICAN [Suspect]
     Active Substance: EVEROLIMUS
     Indication: RENAL TRANSPLANT
     Dosage: 1.5 BID
     Route: 048
     Dates: start: 20140823
  2. PROGRAF [Suspect]
     Active Substance: TACROLIMUS\TACROLIMUS ANHYDROUS
     Indication: RENAL TRANSPLANT
     Dosage: 3/2, MG
     Route: 065
     Dates: start: 20140822
  3. PROGRAF [Suspect]
     Active Substance: TACROLIMUS\TACROLIMUS ANHYDROUS
     Dosage: 1 MG, BID
     Route: 065
     Dates: start: 20150205

REACTIONS (2)
  - Acute kidney injury [Recovering/Resolving]
  - Renal tubular necrosis [Not Recovered/Not Resolved]

NARRATIVE: CASE EVENT DATE: 20141205
